FAERS Safety Report 4819014-2 (Version None)
Quarter: 2005Q4

REPORT INFORMATION
  Report Type: 
  Country: None (occurrence: None)
  Receive Date: 20051101
  Receipt Date: 20051007
  Transmission Date: 20060501
  Serious: Yes (Other)
  Sender: FDA-Public Use
  Company Number: GBS050818274

PATIENT
  Sex: Female

DRUGS (2)
  1. CIALIS [Suspect]
     Indication: PULMONARY HYPERTENSION
     Dosage: 200 MG DAY
  2. TRACLEER [Concomitant]

REACTIONS (3)
  - ELECTROCARDIOGRAM QT PROLONGED [None]
  - PALPITATIONS [None]
  - PRESCRIBED OVERDOSE [None]
